FAERS Safety Report 4594443-3 (Version None)
Quarter: 2005Q1

REPORT INFORMATION
  Report Type: 
  Country: None (occurrence: None)
  Receive Date: 20050301
  Receipt Date: 20040223
  Transmission Date: 20050727
  Serious: No
  Sender: FDA-Public Use
  Company Number: US-GLAXOSMITHKLINE-A0499431A

PATIENT
  Age: 33 Year
  Sex: Female
  Weight: 84.5 kg

DRUGS (2)
  1. VALTREX [Suspect]
     Dosage: 500MG PER DAY
     Route: 048
     Dates: start: 20040219, end: 20040220
  2. HEPARIN [Concomitant]

REACTIONS (3)
  - DRUG EXPOSURE DURING PREGNANCY [None]
  - RASH [None]
  - URTICARIA [None]
